FAERS Safety Report 6979702-9 (Version None)
Quarter: 2010Q3

REPORT INFORMATION
  Report Type: 
  Country: None (occurrence: None)
  Receive Date: 20100913
  Receipt Date: 20100902
  Transmission Date: 20110219
  Serious: Yes (Hospitalization, Other)
  Sender: FDA-Public Use
  Company Number: US-AMGEN-QUU435703

PATIENT
  Sex: Female
  Weight: 89.4 kg

DRUGS (20)
  1. NEUPOGEN [Suspect]
     Indication: PRODUCT USED FOR UNKNOWN INDICATION
  2. VELCADE [Suspect]
     Indication: MULTIPLE MYELOMA
     Route: 042
     Dates: start: 20100126, end: 20100420
  3. CALCIUM CARBONATE/VITAMIN D [Concomitant]
  4. OXYCODONE HCL [Concomitant]
  5. CYCLOBENZAPRINE HCL [Concomitant]
  6. CLINDAMYCIN HYDROCHLORIDE [Concomitant]
  7. PROPOXYPHENE NAPSYLATE W/ ACETAMINOPHEN [Concomitant]
  8. FUROSEMIDE [Concomitant]
  9. ACYCLOVIR [Concomitant]
  10. DEXAMETHASONE [Concomitant]
  11. GABAPENTIN [Concomitant]
  12. UNKNOWN DRUG[INGREDIENT UNKNOWN] [Concomitant]
  13. PANTOPRAZOLE SODIUM [Concomitant]
  14. CARBIDOPA AND LEVODOPA [Concomitant]
  15. ARIXTRA [Concomitant]
  16. PROMETHAZINE HCL [Concomitant]
  17. LEXAPRO [Concomitant]
  18. SIMVASTATIN [Concomitant]
  19. WARFARIN SODIUM [Concomitant]
  20. MORPHINE SULFATE [Concomitant]

REACTIONS (12)
  - ANXIETY [None]
  - BACK PAIN [None]
  - BREAKTHROUGH PAIN [None]
  - DEEP VEIN THROMBOSIS [None]
  - DIVERTICULUM [None]
  - DYSPNOEA [None]
  - HAEMORRHOIDS [None]
  - HYPERLIPIDAEMIA [None]
  - NEUTROPENIA [None]
  - NON-CARDIAC CHEST PAIN [None]
  - PANCYTOPENIA [None]
  - PLASMACYTOMA [None]
